FAERS Safety Report 4300669-6 (Version None)
Quarter: 2004Q1

REPORT INFORMATION
  Report Type: 
  Country: None (occurrence: None)
  Receive Date: 20040218
  Receipt Date: 20040203
  Transmission Date: 20041129
  Serious: Yes (Death)
  Sender: FDA-Public Use
  Company Number: JP_040202607

PATIENT
  Age: 47 Year
  Sex: Male

DRUGS (5)
  1. ZYPREXA [Suspect]
     Indication: SCHIZOPHRENIA
     Dosage: 2.5 MG/DAY
     Dates: start: 20040110
  2. RISPERDAL [Concomitant]
  3. VITAMIN A [Concomitant]
  4. LEXOTAN (BROMAZEPAM) [Concomitant]
  5. DORAL [Concomitant]

REACTIONS (1)
  - SUDDEN DEATH [None]
